FAERS Safety Report 25307343 (Version 1)
Quarter: 2025Q2

REPORT INFORMATION
  Report Type: Report from Study
  Country: US (occurrence: US)
  Receive Date: 20250513
  Receipt Date: 20250513
  Transmission Date: 20250716
  Serious: Yes (Death, Hospitalization, Other)
  Sender: MYLAN
  Company Number: US-MYLANLABS-2025M1037476

PATIENT
  Age: 56 Year
  Sex: Male
  Weight: 72.6 kg

DRUGS (228)
  1. REVATIO [Suspect]
     Active Substance: SILDENAFIL CITRATE
     Indication: Portopulmonary hypertension
     Dosage: 80 MILLIGRAM, TID
     Route: 048
     Dates: start: 201807
  2. REVATIO [Suspect]
     Active Substance: SILDENAFIL CITRATE
     Dosage: 80 MILLIGRAM, TID
     Dates: start: 201807
  3. REVATIO [Suspect]
     Active Substance: SILDENAFIL CITRATE
     Dosage: 80 MILLIGRAM, TID
     Dates: start: 201807
  4. REVATIO [Suspect]
     Active Substance: SILDENAFIL CITRATE
     Dosage: 80 MILLIGRAM, TID
     Route: 048
     Dates: start: 201807
  5. REVATIO [Suspect]
     Active Substance: SILDENAFIL CITRATE
     Dosage: 20 MILLIGRAM, TID
     Route: 065
     Dates: start: 201807
  6. REVATIO [Suspect]
     Active Substance: SILDENAFIL CITRATE
     Dosage: 20 MILLIGRAM, TID
     Dates: start: 201807
  7. REVATIO [Suspect]
     Active Substance: SILDENAFIL CITRATE
     Dosage: 20 MILLIGRAM, TID
     Dates: start: 201807
  8. REVATIO [Suspect]
     Active Substance: SILDENAFIL CITRATE
     Dosage: 20 MILLIGRAM, TID
     Route: 065
     Dates: start: 201807
  9. LISINOPRIL [Suspect]
     Active Substance: LISINOPRIL
     Indication: Product used for unknown indication
  10. LISINOPRIL [Suspect]
     Active Substance: LISINOPRIL
     Route: 065
  11. LISINOPRIL [Suspect]
     Active Substance: LISINOPRIL
     Route: 065
  12. LISINOPRIL [Suspect]
     Active Substance: LISINOPRIL
  13. REMODULIN [Suspect]
     Active Substance: TREPROSTINIL
     Indication: Pulmonary arterial hypertension
     Route: 042
  14. REMODULIN [Suspect]
     Active Substance: TREPROSTINIL
  15. REMODULIN [Suspect]
     Active Substance: TREPROSTINIL
  16. REMODULIN [Suspect]
     Active Substance: TREPROSTINIL
     Route: 042
  17. REMODULIN [Suspect]
     Active Substance: TREPROSTINIL
  18. REMODULIN [Suspect]
     Active Substance: TREPROSTINIL
     Route: 065
  19. REMODULIN [Suspect]
     Active Substance: TREPROSTINIL
     Route: 065
  20. REMODULIN [Suspect]
     Active Substance: TREPROSTINIL
  21. REMODULIN [Suspect]
     Active Substance: TREPROSTINIL
  22. REMODULIN [Suspect]
     Active Substance: TREPROSTINIL
     Route: 065
  23. REMODULIN [Suspect]
     Active Substance: TREPROSTINIL
     Route: 065
  24. REMODULIN [Suspect]
     Active Substance: TREPROSTINIL
  25. REMODULIN [Suspect]
     Active Substance: TREPROSTINIL
     Route: 065
  26. REMODULIN [Suspect]
     Active Substance: TREPROSTINIL
  27. REMODULIN [Suspect]
     Active Substance: TREPROSTINIL
     Route: 065
  28. REMODULIN [Suspect]
     Active Substance: TREPROSTINIL
  29. REMODULIN [Suspect]
     Active Substance: TREPROSTINIL
  30. REMODULIN [Suspect]
     Active Substance: TREPROSTINIL
  31. REMODULIN [Suspect]
     Active Substance: TREPROSTINIL
     Route: 065
  32. REMODULIN [Suspect]
     Active Substance: TREPROSTINIL
     Route: 065
  33. TYVASO [Suspect]
     Active Substance: TREPROSTINIL
     Indication: Pulmonary arterial hypertension
  34. TYVASO [Suspect]
     Active Substance: TREPROSTINIL
     Route: 055
  35. TYVASO [Suspect]
     Active Substance: TREPROSTINIL
     Route: 055
  36. TYVASO [Suspect]
     Active Substance: TREPROSTINIL
  37. ZOFRAN [Suspect]
     Active Substance: ONDANSETRON HYDROCHLORIDE
     Indication: Nausea
     Dosage: 4 MILLIGRAM, Q8H (1 TABLET)
  38. ZOFRAN [Suspect]
     Active Substance: ONDANSETRON HYDROCHLORIDE
     Dosage: 4 MILLIGRAM, Q8H (1 TABLET)
     Route: 048
  39. ZOFRAN [Suspect]
     Active Substance: ONDANSETRON HYDROCHLORIDE
     Dosage: 4 MILLIGRAM, Q8H (1 TABLET)
     Route: 048
  40. ZOFRAN [Suspect]
     Active Substance: ONDANSETRON HYDROCHLORIDE
     Dosage: 4 MILLIGRAM, Q8H (1 TABLET)
  41. ALDACTONE [Suspect]
     Active Substance: SPIRONOLACTONE
     Indication: Product used for unknown indication
     Dosage: 25 MILLIGRAM, QD (1 TABLET)
  42. ALDACTONE [Suspect]
     Active Substance: SPIRONOLACTONE
     Dosage: 25 MILLIGRAM, QD (1 TABLET)
     Route: 048
  43. ALDACTONE [Suspect]
     Active Substance: SPIRONOLACTONE
     Dosage: 25 MILLIGRAM, QD (1 TABLET)
     Route: 048
  44. ALDACTONE [Suspect]
     Active Substance: SPIRONOLACTONE
     Dosage: 25 MILLIGRAM, QD (1 TABLET)
  45. OLANZAPINE [Suspect]
     Active Substance: OLANZAPINE
     Indication: Nausea
  46. OLANZAPINE [Suspect]
     Active Substance: OLANZAPINE
     Route: 065
  47. OLANZAPINE [Suspect]
     Active Substance: OLANZAPINE
     Route: 065
  48. OLANZAPINE [Suspect]
     Active Substance: OLANZAPINE
  49. IMODIUM [Suspect]
     Active Substance: LOPERAMIDE HYDROCHLORIDE
     Indication: Diarrhoea
  50. IMODIUM [Suspect]
     Active Substance: LOPERAMIDE HYDROCHLORIDE
     Route: 065
  51. IMODIUM [Suspect]
     Active Substance: LOPERAMIDE HYDROCHLORIDE
     Route: 065
  52. IMODIUM [Suspect]
     Active Substance: LOPERAMIDE HYDROCHLORIDE
  53. COMPAZINE [Suspect]
     Active Substance: PROCHLORPERAZINE MALEATE
     Indication: Nausea
  54. COMPAZINE [Suspect]
     Active Substance: PROCHLORPERAZINE MALEATE
     Route: 065
  55. COMPAZINE [Suspect]
     Active Substance: PROCHLORPERAZINE MALEATE
     Route: 065
  56. COMPAZINE [Suspect]
     Active Substance: PROCHLORPERAZINE MALEATE
  57. TREPROSTINIL SODIUM [Suspect]
     Active Substance: TREPROSTINIL SODIUM
     Indication: Portopulmonary hypertension
  58. TREPROSTINIL SODIUM [Suspect]
     Active Substance: TREPROSTINIL SODIUM
  59. TREPROSTINIL SODIUM [Suspect]
     Active Substance: TREPROSTINIL SODIUM
     Route: 065
  60. TREPROSTINIL SODIUM [Suspect]
     Active Substance: TREPROSTINIL SODIUM
     Route: 065
  61. TREPROSTINIL SODIUM [Suspect]
     Active Substance: TREPROSTINIL SODIUM
     Route: 042
  62. TREPROSTINIL SODIUM [Suspect]
     Active Substance: TREPROSTINIL SODIUM
     Route: 042
  63. TREPROSTINIL SODIUM [Suspect]
     Active Substance: TREPROSTINIL SODIUM
  64. TREPROSTINIL SODIUM [Suspect]
     Active Substance: TREPROSTINIL SODIUM
  65. TREPROSTINIL SODIUM [Suspect]
     Active Substance: TREPROSTINIL SODIUM
     Route: 042
  66. TREPROSTINIL SODIUM [Suspect]
     Active Substance: TREPROSTINIL SODIUM
  67. TREPROSTINIL SODIUM [Suspect]
     Active Substance: TREPROSTINIL SODIUM
  68. TREPROSTINIL SODIUM [Suspect]
     Active Substance: TREPROSTINIL SODIUM
     Route: 042
  69. TREPROSTINIL SODIUM [Suspect]
     Active Substance: TREPROSTINIL SODIUM
  70. TREPROSTINIL SODIUM [Suspect]
     Active Substance: TREPROSTINIL SODIUM
  71. TREPROSTINIL SODIUM [Suspect]
     Active Substance: TREPROSTINIL SODIUM
     Route: 042
  72. TREPROSTINIL SODIUM [Suspect]
     Active Substance: TREPROSTINIL SODIUM
     Route: 042
  73. TOPROL XL [Suspect]
     Active Substance: METOPROLOL SUCCINATE
     Indication: Hypertension
     Dosage: 25 MILLIGRAM, QD (1 TABLET)
     Route: 048
  74. TOPROL XL [Suspect]
     Active Substance: METOPROLOL SUCCINATE
     Dosage: 25 MILLIGRAM, QD (1 TABLET)
  75. TOPROL XL [Suspect]
     Active Substance: METOPROLOL SUCCINATE
     Dosage: 25 MILLIGRAM, QD (1 TABLET)
  76. TOPROL XL [Suspect]
     Active Substance: METOPROLOL SUCCINATE
     Dosage: 25 MILLIGRAM, QD (1 TABLET)
     Route: 048
  77. TOPROL XL [Suspect]
     Active Substance: METOPROLOL SUCCINATE
     Dosage: 12.5 MILLIGRAM, QD (HALF TABLET)
     Route: 065
  78. TOPROL XL [Suspect]
     Active Substance: METOPROLOL SUCCINATE
     Dosage: 12.5 MILLIGRAM, QD (HALF TABLET)
  79. TOPROL XL [Suspect]
     Active Substance: METOPROLOL SUCCINATE
     Dosage: 12.5 MILLIGRAM, QD (HALF TABLET)
  80. TOPROL XL [Suspect]
     Active Substance: METOPROLOL SUCCINATE
     Dosage: 12.5 MILLIGRAM, QD (HALF TABLET)
     Route: 065
  81. TOPROL XL [Suspect]
     Active Substance: METOPROLOL SUCCINATE
     Dosage: 50 MILLIGRAM, QD (2 TABLET)
     Route: 048
  82. TOPROL XL [Suspect]
     Active Substance: METOPROLOL SUCCINATE
     Dosage: 50 MILLIGRAM, QD (2 TABLET)
     Route: 048
  83. TOPROL XL [Suspect]
     Active Substance: METOPROLOL SUCCINATE
     Dosage: 50 MILLIGRAM, QD (2 TABLET)
  84. TOPROL XL [Suspect]
     Active Substance: METOPROLOL SUCCINATE
     Dosage: 50 MILLIGRAM, QD (2 TABLET)
  85. VITAMIN D3 [Concomitant]
     Active Substance: CHOLECALCIFEROL
  86. VITAMIN D3 [Concomitant]
     Active Substance: CHOLECALCIFEROL
     Route: 065
  87. VITAMIN D3 [Concomitant]
     Active Substance: CHOLECALCIFEROL
     Route: 065
  88. VITAMIN D3 [Concomitant]
     Active Substance: CHOLECALCIFEROL
  89. LANOXIN [Concomitant]
     Active Substance: DIGOXIN
  90. LANOXIN [Concomitant]
     Active Substance: DIGOXIN
     Route: 065
  91. LANOXIN [Concomitant]
     Active Substance: DIGOXIN
     Route: 065
  92. LANOXIN [Concomitant]
     Active Substance: DIGOXIN
  93. FOLIC ACID [Concomitant]
     Active Substance: FOLIC ACID
  94. FOLIC ACID [Concomitant]
     Active Substance: FOLIC ACID
     Route: 065
  95. FOLIC ACID [Concomitant]
     Active Substance: FOLIC ACID
     Route: 065
  96. FOLIC ACID [Concomitant]
     Active Substance: FOLIC ACID
  97. SODIUM CHLORIDE [Concomitant]
     Active Substance: SODIUM CHLORIDE
  98. SODIUM CHLORIDE [Concomitant]
     Active Substance: SODIUM CHLORIDE
     Route: 065
  99. SODIUM CHLORIDE [Concomitant]
     Active Substance: SODIUM CHLORIDE
     Route: 065
  100. SODIUM CHLORIDE [Concomitant]
     Active Substance: SODIUM CHLORIDE
  101. TORSEMIDE [Concomitant]
     Active Substance: TORSEMIDE
  102. TORSEMIDE [Concomitant]
     Active Substance: TORSEMIDE
     Route: 065
  103. TORSEMIDE [Concomitant]
     Active Substance: TORSEMIDE
     Route: 065
  104. TORSEMIDE [Concomitant]
     Active Substance: TORSEMIDE
  105. ATORVASTATIN CALCIUM [Concomitant]
     Active Substance: ATORVASTATIN CALCIUM
  106. ATORVASTATIN CALCIUM [Concomitant]
     Active Substance: ATORVASTATIN CALCIUM
     Route: 065
  107. ATORVASTATIN CALCIUM [Concomitant]
     Active Substance: ATORVASTATIN CALCIUM
     Route: 065
  108. ATORVASTATIN CALCIUM [Concomitant]
     Active Substance: ATORVASTATIN CALCIUM
  109. POTASSIUM CHLORIDE [Concomitant]
     Active Substance: POTASSIUM CHLORIDE
  110. POTASSIUM CHLORIDE [Concomitant]
     Active Substance: POTASSIUM CHLORIDE
     Route: 065
  111. POTASSIUM CHLORIDE [Concomitant]
     Active Substance: POTASSIUM CHLORIDE
     Route: 065
  112. POTASSIUM CHLORIDE [Concomitant]
     Active Substance: POTASSIUM CHLORIDE
  113. SILDENAFIL CITRATE [Concomitant]
     Active Substance: SILDENAFIL CITRATE
  114. SILDENAFIL CITRATE [Concomitant]
     Active Substance: SILDENAFIL CITRATE
     Route: 065
  115. SILDENAFIL CITRATE [Concomitant]
     Active Substance: SILDENAFIL CITRATE
     Route: 065
  116. SILDENAFIL CITRATE [Concomitant]
     Active Substance: SILDENAFIL CITRATE
  117. OXYCODONE HYDROCHLORIDE [Concomitant]
     Active Substance: OXYCODONE HYDROCHLORIDE
  118. OXYCODONE HYDROCHLORIDE [Concomitant]
     Active Substance: OXYCODONE HYDROCHLORIDE
     Route: 065
  119. OXYCODONE HYDROCHLORIDE [Concomitant]
     Active Substance: OXYCODONE HYDROCHLORIDE
     Route: 065
  120. OXYCODONE HYDROCHLORIDE [Concomitant]
     Active Substance: OXYCODONE HYDROCHLORIDE
  121. PREVACID [Concomitant]
     Active Substance: LANSOPRAZOLE
  122. PREVACID [Concomitant]
     Active Substance: LANSOPRAZOLE
     Route: 065
  123. PREVACID [Concomitant]
     Active Substance: LANSOPRAZOLE
     Route: 065
  124. PREVACID [Concomitant]
     Active Substance: LANSOPRAZOLE
  125. METOPROLOL SUCCINATE [Concomitant]
     Active Substance: METOPROLOL SUCCINATE
  126. METOPROLOL SUCCINATE [Concomitant]
     Active Substance: METOPROLOL SUCCINATE
     Route: 065
  127. METOPROLOL SUCCINATE [Concomitant]
     Active Substance: METOPROLOL SUCCINATE
     Route: 065
  128. METOPROLOL SUCCINATE [Concomitant]
     Active Substance: METOPROLOL SUCCINATE
  129. SPIRONOLACTONE [Concomitant]
     Active Substance: SPIRONOLACTONE
  130. SPIRONOLACTONE [Concomitant]
     Active Substance: SPIRONOLACTONE
     Route: 065
  131. SPIRONOLACTONE [Concomitant]
     Active Substance: SPIRONOLACTONE
     Route: 065
  132. SPIRONOLACTONE [Concomitant]
     Active Substance: SPIRONOLACTONE
  133. GABAPENTIN [Concomitant]
     Active Substance: GABAPENTIN
  134. GABAPENTIN [Concomitant]
     Active Substance: GABAPENTIN
     Route: 065
  135. GABAPENTIN [Concomitant]
     Active Substance: GABAPENTIN
     Route: 065
  136. GABAPENTIN [Concomitant]
     Active Substance: GABAPENTIN
  137. RIFAXIMIN [Concomitant]
     Active Substance: RIFAXIMIN
  138. RIFAXIMIN [Concomitant]
     Active Substance: RIFAXIMIN
     Route: 065
  139. RIFAXIMIN [Concomitant]
     Active Substance: RIFAXIMIN
     Route: 065
  140. RIFAXIMIN [Concomitant]
     Active Substance: RIFAXIMIN
  141. TYLENOL [Concomitant]
     Active Substance: ACETAMINOPHEN
  142. TYLENOL [Concomitant]
     Active Substance: ACETAMINOPHEN
     Route: 065
  143. TYLENOL [Concomitant]
     Active Substance: ACETAMINOPHEN
     Route: 065
  144. TYLENOL [Concomitant]
     Active Substance: ACETAMINOPHEN
  145. PEPCID [Concomitant]
     Active Substance: FAMOTIDINE
  146. PEPCID [Concomitant]
     Active Substance: FAMOTIDINE
     Route: 065
  147. PEPCID [Concomitant]
     Active Substance: FAMOTIDINE
     Route: 065
  148. PEPCID [Concomitant]
     Active Substance: FAMOTIDINE
  149. FLONASE ALLERGY RELIEF [Concomitant]
     Active Substance: FLUTICASONE PROPIONATE
  150. FLONASE ALLERGY RELIEF [Concomitant]
     Active Substance: FLUTICASONE PROPIONATE
     Route: 065
  151. FLONASE ALLERGY RELIEF [Concomitant]
     Active Substance: FLUTICASONE PROPIONATE
     Route: 065
  152. FLONASE ALLERGY RELIEF [Concomitant]
     Active Substance: FLUTICASONE PROPIONATE
  153. FUROSEMIDE [Concomitant]
     Active Substance: FUROSEMIDE
  154. FUROSEMIDE [Concomitant]
     Active Substance: FUROSEMIDE
     Route: 065
  155. FUROSEMIDE [Concomitant]
     Active Substance: FUROSEMIDE
     Route: 065
  156. FUROSEMIDE [Concomitant]
     Active Substance: FUROSEMIDE
  157. GLIPIZIDE [Concomitant]
     Active Substance: GLIPIZIDE
  158. GLIPIZIDE [Concomitant]
     Active Substance: GLIPIZIDE
     Route: 065
  159. GLIPIZIDE [Concomitant]
     Active Substance: GLIPIZIDE
     Route: 065
  160. GLIPIZIDE [Concomitant]
     Active Substance: GLIPIZIDE
  161. MAGNESIUM OXIDE [Concomitant]
     Active Substance: MAGNESIUM OXIDE
  162. MAGNESIUM OXIDE [Concomitant]
     Active Substance: MAGNESIUM OXIDE
     Route: 065
  163. MAGNESIUM OXIDE [Concomitant]
     Active Substance: MAGNESIUM OXIDE
     Route: 065
  164. MAGNESIUM OXIDE [Concomitant]
     Active Substance: MAGNESIUM OXIDE
  165. TRAZODONE HCL [Concomitant]
     Active Substance: TRAZODONE HYDROCHLORIDE
  166. TRAZODONE HCL [Concomitant]
     Active Substance: TRAZODONE HYDROCHLORIDE
     Route: 065
  167. TRAZODONE HCL [Concomitant]
     Active Substance: TRAZODONE HYDROCHLORIDE
     Route: 065
  168. TRAZODONE HCL [Concomitant]
     Active Substance: TRAZODONE HYDROCHLORIDE
  169. Polyethylene glycol and electrolyte [Concomitant]
  170. Polyethylene glycol and electrolyte [Concomitant]
     Route: 065
  171. Polyethylene glycol and electrolyte [Concomitant]
     Route: 065
  172. Polyethylene glycol and electrolyte [Concomitant]
  173. ESGIC [Concomitant]
     Active Substance: ACETAMINOPHEN\BUTALBITAL\CAFFEINE
  174. ESGIC [Concomitant]
     Active Substance: ACETAMINOPHEN\BUTALBITAL\CAFFEINE
     Route: 065
  175. ESGIC [Concomitant]
     Active Substance: ACETAMINOPHEN\BUTALBITAL\CAFFEINE
     Route: 065
  176. ESGIC [Concomitant]
     Active Substance: ACETAMINOPHEN\BUTALBITAL\CAFFEINE
  177. VITAMINS [Concomitant]
     Active Substance: VITAMINS
  178. VITAMINS [Concomitant]
     Active Substance: VITAMINS
     Route: 065
  179. VITAMINS [Concomitant]
     Active Substance: VITAMINS
     Route: 065
  180. VITAMINS [Concomitant]
     Active Substance: VITAMINS
  181. FIORICET [Concomitant]
     Active Substance: ACETAMINOPHEN\BUTALBITAL\CAFFEINE
  182. FIORICET [Concomitant]
     Active Substance: ACETAMINOPHEN\BUTALBITAL\CAFFEINE
     Route: 065
  183. FIORICET [Concomitant]
     Active Substance: ACETAMINOPHEN\BUTALBITAL\CAFFEINE
     Route: 065
  184. FIORICET [Concomitant]
     Active Substance: ACETAMINOPHEN\BUTALBITAL\CAFFEINE
  185. ROCEPHIN [Concomitant]
     Active Substance: CEFTRIAXONE SODIUM
  186. ROCEPHIN [Concomitant]
     Active Substance: CEFTRIAXONE SODIUM
     Route: 065
  187. ROCEPHIN [Concomitant]
     Active Substance: CEFTRIAXONE SODIUM
     Route: 065
  188. ROCEPHIN [Concomitant]
     Active Substance: CEFTRIAXONE SODIUM
  189. INSULIN NOS [Concomitant]
     Active Substance: INSULIN NOS
  190. INSULIN NOS [Concomitant]
     Active Substance: INSULIN NOS
     Route: 065
  191. INSULIN NOS [Concomitant]
     Active Substance: INSULIN NOS
     Route: 065
  192. INSULIN NOS [Concomitant]
     Active Substance: INSULIN NOS
  193. HONEY [Concomitant]
     Active Substance: HONEY
  194. HONEY [Concomitant]
     Active Substance: HONEY
     Route: 065
  195. HONEY [Concomitant]
     Active Substance: HONEY
     Route: 065
  196. HONEY [Concomitant]
     Active Substance: HONEY
  197. SILICON [Concomitant]
     Active Substance: SILICON
  198. SILICON [Concomitant]
     Active Substance: SILICON
     Route: 065
  199. SILICON [Concomitant]
     Active Substance: SILICON
     Route: 065
  200. SILICON [Concomitant]
     Active Substance: SILICON
  201. OSELTAMIVIR [Concomitant]
     Active Substance: OSELTAMIVIR
  202. OSELTAMIVIR [Concomitant]
     Active Substance: OSELTAMIVIR
     Route: 065
  203. OSELTAMIVIR [Concomitant]
     Active Substance: OSELTAMIVIR
     Route: 065
  204. OSELTAMIVIR [Concomitant]
     Active Substance: OSELTAMIVIR
  205. FOLVITE [Concomitant]
     Active Substance: FOLIC ACID
  206. FOLVITE [Concomitant]
     Active Substance: FOLIC ACID
     Route: 065
  207. FOLVITE [Concomitant]
     Active Substance: FOLIC ACID
     Route: 065
  208. FOLVITE [Concomitant]
     Active Substance: FOLIC ACID
  209. DEMADEX [Concomitant]
     Active Substance: TORSEMIDE
  210. DEMADEX [Concomitant]
     Active Substance: TORSEMIDE
     Route: 065
  211. DEMADEX [Concomitant]
     Active Substance: TORSEMIDE
     Route: 065
  212. DEMADEX [Concomitant]
     Active Substance: TORSEMIDE
  213. ROXICODONE [Concomitant]
     Active Substance: OXYCODONE HYDROCHLORIDE
  214. ROXICODONE [Concomitant]
     Active Substance: OXYCODONE HYDROCHLORIDE
     Route: 065
  215. ROXICODONE [Concomitant]
     Active Substance: OXYCODONE HYDROCHLORIDE
     Route: 065
  216. ROXICODONE [Concomitant]
     Active Substance: OXYCODONE HYDROCHLORIDE
  217. NEURONTIN [Concomitant]
     Active Substance: GABAPENTIN
  218. NEURONTIN [Concomitant]
     Active Substance: GABAPENTIN
     Route: 065
  219. NEURONTIN [Concomitant]
     Active Substance: GABAPENTIN
     Route: 065
  220. NEURONTIN [Concomitant]
     Active Substance: GABAPENTIN
  221. ASPIRIN [Concomitant]
     Active Substance: ASPIRIN
  222. ASPIRIN [Concomitant]
     Active Substance: ASPIRIN
     Route: 065
  223. ASPIRIN [Concomitant]
     Active Substance: ASPIRIN
     Route: 065
  224. ASPIRIN [Concomitant]
     Active Substance: ASPIRIN
  225. GLUCOPHAGE XR [Concomitant]
     Active Substance: METFORMIN HYDROCHLORIDE
  226. GLUCOPHAGE XR [Concomitant]
     Active Substance: METFORMIN HYDROCHLORIDE
     Route: 065
  227. GLUCOPHAGE XR [Concomitant]
     Active Substance: METFORMIN HYDROCHLORIDE
     Route: 065
  228. GLUCOPHAGE XR [Concomitant]
     Active Substance: METFORMIN HYDROCHLORIDE

REACTIONS (46)
  - Dehydration [Fatal]
  - COVID-19 [Unknown]
  - Shock [Unknown]
  - Failure to thrive [Unknown]
  - Hypotension [Recovered/Resolved]
  - Vomiting [Unknown]
  - Cardiac failure [Unknown]
  - Acute kidney injury [Unknown]
  - Anaemia [Unknown]
  - Thrombotic thrombocytopenic purpura [Unknown]
  - Hyponatraemia [Unknown]
  - Encephalopathy [Unknown]
  - Hypomagnesaemia [Unknown]
  - Chronic right ventricular failure [Unknown]
  - Ascites [Unknown]
  - Malnutrition [Unknown]
  - Abnormal loss of weight [Unknown]
  - Influenza A virus test positive [Unknown]
  - Varices oesophageal [Unknown]
  - Diarrhoea [Unknown]
  - Dysphagia [Unknown]
  - Lung diffusion disorder [Unknown]
  - Discomfort [Unknown]
  - Fatigue [Unknown]
  - Dyspnoea exertional [Unknown]
  - Oedema peripheral [Unknown]
  - Tremor [Unknown]
  - Use of accessory respiratory muscles [Unknown]
  - Tachycardia [Unknown]
  - Decubitus ulcer [Unknown]
  - Abdominal pain lower [Unknown]
  - Dizziness [Unknown]
  - Pain in extremity [Unknown]
  - Myalgia [Unknown]
  - Back pain [Unknown]
  - Pneumonia [Unknown]
  - Arthralgia [Unknown]
  - Ear infection [Unknown]
  - Decreased appetite [Unknown]
  - Mastoiditis [Unknown]
  - Coagulopathy [Unknown]
  - Disseminated intravascular coagulation [Unknown]
  - Upper gastrointestinal haemorrhage [Unknown]
  - Headache [Unknown]
  - Nausea [Unknown]
  - Product dose omission issue [Unknown]

NARRATIVE: CASE EVENT DATE: 20240412
